FAERS Safety Report 8334978-0 (Version None)
Quarter: 2012Q2

REPORT INFORMATION
  Report Type: 
  Country: None (occurrence: None)
  Receive Date: 20120503
  Receipt Date: 20100316
  Transmission Date: 20120825
  Serious: No
  Sender: FDA-Public Use
  Company Number: US-TEVA-2010001544

PATIENT
  Sex: Male
  Weight: 59.02 kg

DRUGS (2)
  1. NOVOLOG [Concomitant]
     Indication: DIABETES MELLITUS
  2. NUVIGIL [Suspect]
     Indication: CIRCADIAN RHYTHM SLEEP DISORDER
     Route: 048
     Dates: start: 20100311

REACTIONS (1)
  - INCREASED INSULIN REQUIREMENT [None]
